FAERS Safety Report 8693522 (Version 3)
Quarter: 2012Q4

REPORT INFORMATION
  Report Type: 
  Country: US (occurrence: US)
  Receive Date: 20120730
  Receipt Date: 20121205
  Transmission Date: 20130627
  Serious: Yes (Other)
  Sender: FDA-Public Use
  Company Number: US-RB-042745-12

PATIENT
  Age: 48 Year
  Sex: Female

DRUGS (5)
  1. SUBOXONE TABLET [Suspect]
     Indication: DRUG DEPENDENCE
     Dosage: 8 mg twice a day
     Route: 060
     Dates: start: 2010, end: 20121108
  2. SUBOXONE TABLET [Suspect]
     Dosage: selt tapering down to 1/4 tablet daily
     Route: 060
  3. KLONOPIN [Concomitant]
     Indication: MENTAL DISORDER
     Dosage: Dosing details unknown
     Route: 065
  4. SYNTHROID [Concomitant]
     Indication: THYROID DISORDER
     Dosage: Dosing details unknown
     Route: 065
  5. ZOLOFT [Concomitant]
     Indication: ANXIETY
     Dosage: Dosing details unknown
     Route: 065

REACTIONS (13)
  - Wrong technique in drug usage process [Not Recovered/Not Resolved]
  - Therapeutic response unexpected [Recovered/Resolved]
  - Drug withdrawal syndrome [Not Recovered/Not Resolved]
  - Depression [Not Recovered/Not Resolved]
  - Underdose [Not Recovered/Not Resolved]
  - Suicidal ideation [Recovered/Resolved]
  - Bladder cancer [Recovered/Resolved]
  - Road traffic accident [Recovered/Resolved]
  - Bone pain [Not Recovered/Not Resolved]
  - Vomiting [Not Recovered/Not Resolved]
  - Diarrhoea [Not Recovered/Not Resolved]
  - Nightmare [Recovered/Resolved]
  - Spinal cord neoplasm [Not Recovered/Not Resolved]
